FAERS Safety Report 15897962 (Version 2)
Quarter: 2020Q1

REPORT INFORMATION
  Report Type: Report from Study
  Country: JP (occurrence: JP)
  Receive Date: 20190201
  Receipt Date: 20200122
  Transmission Date: 20200409
  Serious: Yes (Hospitalization)
  Sender: FDA-Public Use
  Company Number: JP-BIOGEN-2017BI00489842

PATIENT
  Age: 2 Year
  Sex: Female
  Weight: 6.21 kg

DRUGS (28)
  1. SPINRAZA [Suspect]
     Active Substance: NUSINERSEN
     Route: 050
     Dates: start: 20171130, end: 20171130
  2. SPINRAZA [Suspect]
     Active Substance: NUSINERSEN
     Route: 050
     Dates: start: 20180517, end: 20180517
  3. SPINRAZA [Suspect]
     Active Substance: NUSINERSEN
     Route: 050
     Dates: start: 20190205, end: 20190205
  4. FENTANYL. [Concomitant]
     Active Substance: FENTANYL
     Dates: start: 20190205, end: 20190205
  5. PENLES [Concomitant]
     Active Substance: LIDOCAINE
     Route: 050
     Dates: start: 20190205, end: 20190205
  6. MONILAC [Concomitant]
     Active Substance: LACTULOSE
     Indication: SPINAL MUSCULAR ATROPHY
     Route: 050
  7. SODIUM VALPROATE [Concomitant]
     Active Substance: VALPROATE SODIUM
     Indication: SPINAL MUSCULAR ATROPHY
     Route: 050
  8. PENLES [Concomitant]
     Active Substance: LIDOCAINE
     Route: 050
     Dates: start: 20180517, end: 20180517
  9. TELEMINSOFT [Concomitant]
     Active Substance: BISACODYL
     Indication: SPINAL MUSCULAR ATROPHY
     Dosage: DAILY DOSE: AT CONSTIPATION 2MG
     Route: 050
  10. FENTANYL. [Concomitant]
     Active Substance: FENTANYL
     Indication: ANAESTHESIA PROCEDURE
  11. SELENICA-R [Concomitant]
     Active Substance: VALPROATE SODIUM
     Indication: EPILEPSY
     Route: 050
  12. SPINRAZA [Suspect]
     Active Substance: NUSINERSEN
     Route: 050
     Dates: start: 20171214, end: 20171214
  13. XYLOCAINE [Concomitant]
     Active Substance: LIDOCAINE HYDROCHLORIDE
     Route: 050
     Dates: start: 20190205, end: 20190205
  14. FENTANYL. [Concomitant]
     Active Substance: FENTANYL
     Dates: start: 20180517, end: 20180517
  15. SELENICA-R [Concomitant]
     Active Substance: VALPROATE SODIUM
     Dosage: VIA A GASTRIC FISTULA
     Route: 050
  16. SPINRAZA [Suspect]
     Active Substance: NUSINERSEN
     Route: 050
     Dates: start: 20180117, end: 20180117
  17. SPINRAZA [Suspect]
     Active Substance: NUSINERSEN
     Route: 050
     Dates: start: 20180920, end: 20180920
  18. MONILAC [Concomitant]
     Active Substance: LACTULOSE
     Dosage: VIA A GASTRIC FISTULA
     Route: 050
  19. PENLES [Concomitant]
     Active Substance: LIDOCAINE
     Indication: ANAESTHESIA PROCEDURE
     Route: 050
  20. XYLOCAINE [Concomitant]
     Active Substance: LIDOCAINE HYDROCHLORIDE
     Indication: ANAESTHESIA PROCEDURE
     Route: 050
  21. XYLOCAINE [Concomitant]
     Active Substance: LIDOCAINE HYDROCHLORIDE
     Route: 050
     Dates: start: 20180517, end: 20180517
  22. XYLOCAINE [Concomitant]
     Active Substance: LIDOCAINE HYDROCHLORIDE
     Route: 050
     Dates: start: 20180920, end: 20180920
  23. HYALEIN [Concomitant]
     Active Substance: HYALURONATE SODIUM
     Indication: SPINAL MUSCULAR ATROPHY
     Dosage: INSTILLED INTO EYES 4-6 TIMES PER DAY
     Route: 050
  24. PROPETO [Concomitant]
     Active Substance: PETROLATUM
     Indication: ASTEATOSIS
     Dosage: DRY PARTS
     Route: 050
  25. ENEVO [Concomitant]
     Indication: SPINAL MUSCULAR ATROPHY
     Dosage: VIA A GASTRIC FISTULA
     Route: 050
  26. SPINRAZA [Suspect]
     Active Substance: NUSINERSEN
     Indication: SPINAL MUSCULAR ATROPHY
     Route: 050
     Dates: start: 20171115, end: 20171115
  27. FENTANYL. [Concomitant]
     Active Substance: FENTANYL
     Dates: start: 20180920, end: 20180920
  28. PENLES [Concomitant]
     Active Substance: LIDOCAINE
     Route: 050
     Dates: start: 20180920, end: 20180920

REACTIONS (6)
  - Pyrexia [Recovered/Resolved]
  - Atelectasis [Recovered/Resolved]
  - Bronchitis [Recovered/Resolved]
  - Pyrexia [Recovered/Resolved]
  - Pyrexia [Unknown]
  - Pneumonia [Recovered/Resolved]

NARRATIVE: CASE EVENT DATE: 20171115
